FAERS Safety Report 7622068-1 (Version None)
Quarter: 2011Q3

REPORT INFORMATION
  Report Type: 
  Country: None (occurrence: None)
  Receive Date: 20110720
  Receipt Date: 20101018
  Transmission Date: 20111222
  Serious: Yes (Hospitalization, Other)
  Sender: FDA-Public Use
  Company Number: US-BAYER-201036623NA

PATIENT
  Sex: Female
  Weight: 68 kg

DRUGS (4)
  1. DROSPIRENONE AND ETHINYL ESTRADIOL [Suspect]
     Indication: ACNE
     Dosage: UNK
     Dates: start: 20040101, end: 20100101
  2. IBUPROFEN [Concomitant]
  3. YAZ [Suspect]
     Indication: ACNE
     Dosage: UNK
     Dates: start: 20040101, end: 20100101
  4. YASMIN [Suspect]
     Indication: ACNE
     Dosage: UNK
     Dates: start: 20040101, end: 20100101

REACTIONS (6)
  - INJURY [None]
  - HYDRONEPHROSIS [None]
  - BACK PAIN [None]
  - CALCULUS URETHRAL [None]
  - FLANK PAIN [None]
  - NEPHROLITHIASIS [None]
